FAERS Safety Report 8261594-1 (Version None)
Quarter: 2012Q2

REPORT INFORMATION
  Report Type: 
  Country: None (occurrence: None)
  Receive Date: 20120405
  Receipt Date: 20120324
  Transmission Date: 20120825
  Serious: Yes (Hospitalization)
  Sender: FDA-Public Use
  Company Number: DE-MYLANLABS-2012S1006412

PATIENT
  Age: 37 Year
  Sex: Female
  Weight: 85 kg

DRUGS (3)
  1. OPIPRAMOL [Suspect]
     Route: 048
  2. BISOPROLOL DURA PLUS [Suspect]
     Route: 048
  3. METFORMIN HCL [Suspect]
     Route: 048

REACTIONS (3)
  - OVERDOSE [None]
  - SUICIDE ATTEMPT [None]
  - MULTIPLE DRUG OVERDOSE INTENTIONAL [None]
